FAERS Safety Report 4939182-1 (Version None)
Quarter: 2006Q1

REPORT INFORMATION
  Report Type: 
  Country: None (occurrence: None)
  Receive Date: 20060310
  Receipt Date: 20060227
  Transmission Date: 20060701
  Serious: Yes (Hospitalization, Other)
  Sender: FDA-Public Use
  Company Number: GB-JNJFOC-20060301739

PATIENT
  Sex: Female
  Weight: 70 kg

DRUGS (6)
  1. REMICADE [Suspect]
     Indication: RHEUMATOID ARTHRITIS
     Route: 042
  2. METHOTREXATE [Concomitant]
  3. CO-DYDRAMOL [Concomitant]
  4. CO-DYDRAMOL [Concomitant]
  5. FOLIC ACID [Concomitant]
  6. ROFECOXIB [Concomitant]

REACTIONS (2)
  - MALIGNANT MELANOMA [None]
  - METASTASES TO LYMPH NODES [None]
